FAERS Safety Report 6748513-1 (Version None)
Quarter: 2010Q2

REPORT INFORMATION
  Report Type: 
  Country: None (occurrence: None)
  Receive Date: 20100527
  Receipt Date: 20100527
  Transmission Date: 20101027
  Serious: Yes (Hospitalization)
  Sender: FDA-Public Use
  Company Number: None

PATIENT
  Age: 41 Year
  Sex: Male
  Weight: 102 kg

DRUGS (4)
  1. ALLOPURINOL TAB [Suspect]
     Indication: GOUT
     Dosage: 300MG DAILY ORAL
     Route: 048
     Dates: start: 20100326, end: 20100415
  2. LISINOPRIL [Concomitant]
  3. INDAPAMIDE [Concomitant]
  4. ABILIFY [Concomitant]

REACTIONS (4)
  - APHAGIA [None]
  - CONJUNCTIVITIS [None]
  - LIP SWELLING [None]
  - STEVENS-JOHNSON SYNDROME [None]
